FAERS Safety Report 5300959-4 (Version None)
Quarter: 2007Q2

REPORT INFORMATION
  Report Type: 
  Country: None (occurrence: None)
  Receive Date: 20070418
  Receipt Date: 20070417
  Transmission Date: 20071010
  Serious: Yes (Other)
  Sender: FDA-Public Use
  Company Number: JP-BRISTOL-MYERS SQUIBB COMPANY-13750344

PATIENT
  Age: 60 Year
  Sex: Male

DRUGS (6)
  1. CISPLATIN [Suspect]
     Indication: ADENOCARCINOMA
  2. CYCLOPHOSPHAMIDE [Suspect]
     Indication: ADENOCARCINOMA
  3. DOXORUBICIN [Suspect]
     Indication: ADENOCARCINOMA
  4. VINCRISTINE [Suspect]
     Indication: ADENOCARCINOMA
  5. PREDNISONE TAB [Suspect]
     Indication: ADENOCARCINOMA
  6. FLUOROURACIL [Suspect]

REACTIONS (2)
  - DRUG INEFFECTIVE [None]
  - PNEUMONITIS [None]
